FAERS Safety Report 6179245-9 (Version None)
Quarter: 2009Q2

REPORT INFORMATION
  Report Type: 
  Country: None (occurrence: None)
  Receive Date: 20090505
  Receipt Date: 20090316
  Transmission Date: 20091009
  Serious: No
  Sender: FDA-Public Use
  Company Number: US-BAYER-200915725NA

PATIENT
  Sex: Female

DRUGS (4)
  1. YAZ [Suspect]
     Indication: DRUG USE FOR UNKNOWN INDICATION
     Route: 048
     Dates: start: 20080101
  2. VITAMINS [Concomitant]
  3. SUPPLEMENTS NOS [Concomitant]
  4. NSAIDS NOS [Concomitant]

REACTIONS (2)
  - METRORRHAGIA [None]
  - STRESS [None]
